FAERS Safety Report 8226970-1 (Version None)
Quarter: 2012Q1

REPORT INFORMATION
  Report Type: 
  Country: None (occurrence: None)
  Receive Date: 20120322
  Receipt Date: 20120314
  Transmission Date: 20120608
  Serious: Yes (Hospitalization, Disabling)
  Sender: FDA-Public Use
  Company Number: JP-JNJFOC-20091003946

PATIENT
  Sex: Female
  Weight: 60 kg

DRUGS (24)
  1. PREDNISOLONE [Concomitant]
     Route: 048
     Dates: start: 20090917, end: 20090930
  2. METHYCOBAL [Concomitant]
     Indication: PRODUCT USED FOR UNKNOWN INDICATION
     Route: 048
  3. ALENDRONATE SODIUM [Concomitant]
     Indication: PRODUCT USED FOR UNKNOWN INDICATION
     Route: 048
  4. LIPITOR [Concomitant]
     Indication: PRODUCT USED FOR UNKNOWN INDICATION
     Route: 048
  5. PREDNISOLONE [Concomitant]
     Indication: PRODUCT USED FOR UNKNOWN INDICATION
     Route: 048
     Dates: start: 20091118, end: 20091215
  6. PREDNISOLONE [Concomitant]
     Route: 048
     Dates: start: 20091028, end: 20091117
  7. PREDNISOLONE [Concomitant]
     Route: 048
     Dates: start: 20100913, end: 20110424
  8. PREDNISOLONE [Concomitant]
     Route: 048
     Dates: start: 20090827, end: 20090916
  9. PREDNISOLONE [Concomitant]
     Route: 048
     Dates: start: 20090722, end: 20090816
  10. PREDNISOLONE [Concomitant]
     Route: 048
     Dates: start: 20110425
  11. PREDNISOLONE [Concomitant]
     Route: 048
     Dates: start: 20090820, end: 20090823
  12. INDOMETHACIN [Concomitant]
     Indication: PRODUCT USED FOR UNKNOWN INDICATION
     Route: 061
  13. DOXORUBICIN HCL [Suspect]
     Indication: OVARIAN CANCER RECURRENT
     Dosage: COURSE 2
     Route: 042
     Dates: start: 20090716, end: 20090716
  14. PREDNISOLONE [Concomitant]
     Route: 048
     Dates: start: 20091001, end: 20091016
  15. UNKNOWN MEDICATION [Concomitant]
     Route: 055
  16. DOXORUBICIN HCL [Suspect]
     Dosage: COURSE 1
     Route: 042
     Dates: start: 20090610, end: 20090610
  17. PREDNISOLONE [Concomitant]
     Route: 048
     Dates: start: 20091017, end: 20091027
  18. PREDNISOLONE [Concomitant]
     Route: 048
     Dates: start: 20091216, end: 20100111
  19. PREDNISOLONE [Concomitant]
     Route: 048
     Dates: start: 20090112, end: 20100509
  20. PREDNISOLONE [Concomitant]
     Route: 048
     Dates: start: 20100510, end: 20100912
  21. CLONAZEPAM [Concomitant]
     Indication: PRODUCT USED FOR UNKNOWN INDICATION
     Route: 048
  22. NORVASC [Concomitant]
     Indication: PRODUCT USED FOR UNKNOWN INDICATION
     Route: 048
  23. OMEPRAZOLE [Concomitant]
     Indication: PRODUCT USED FOR UNKNOWN INDICATION
     Route: 048
  24. JUVELA N [Concomitant]
     Indication: PRODUCT USED FOR UNKNOWN INDICATION
     Route: 048

REACTIONS (1)
  - INTERSTITIAL LUNG DISEASE [None]
